FAERS Safety Report 6860882-0 (Version None)
Quarter: 2010Q3

REPORT INFORMATION
  Report Type: 
  Country: None (occurrence: None)
  Receive Date: 20100720
  Receipt Date: 20100709
  Transmission Date: 20110219
  Serious: Yes (Hospitalization)
  Sender: FDA-Public Use
  Company Number: GB-JNJFOC-20091104080

PATIENT

DRUGS (2)
  1. PARACETAMOL [Suspect]
  2. PARACETAMOL [Suspect]
     Indication: PRODUCT USED FOR UNKNOWN INDICATION

REACTIONS (3)
  - HEPATIC ENCEPHALOPATHY [None]
  - LIVER INJURY [None]
  - OVERDOSE [None]
